FAERS Safety Report 13582286 (Version 5)
Quarter: 2017Q2

REPORT INFORMATION
  Report Type: Spontaneous
  Country: US (occurrence: US)
  Receive Date: 20170525
  Receipt Date: 20170630
  Transmission Date: 20170830
  Serious: No
  Sender: FDA-Public Use
  Company Number: US-PFIZER INC-2017227996

PATIENT
  Age: 75 Year
  Sex: Female
  Weight: 48 kg

DRUGS (4)
  1. NORVASC [Suspect]
     Active Substance: AMLODIPINE BESYLATE
     Indication: BLOOD PRESSURE INCREASED
     Dosage: 2.5MG, 1X/DAY (ONE HALF 5MG TABLET)
     Route: 048
     Dates: start: 2007
  2. NORVASC [Suspect]
     Active Substance: AMLODIPINE BESYLATE
     Indication: HEART RATE INCREASED
     Dosage: 10 MG, DAILY
     Route: 048
  3. ASPIRIN. [Concomitant]
     Active Substance: ASPIRIN
     Indication: ANTICOAGULANT THERAPY
     Dosage: 325 MG (ONCE OR TWICE A WEEK)
     Dates: start: 1995
  4. CARDIZEM [Suspect]
     Active Substance: DILTIAZEM HYDROCHLORIDE
     Indication: HYPERTENSION
     Dosage: 30 MG, 4X/DAY
     Dates: start: 1995

REACTIONS (7)
  - Hypotension [Unknown]
  - Product physical issue [Unknown]
  - Malaise [Unknown]
  - Dysgeusia [Not Recovered/Not Resolved]
  - Hypoaesthesia [Recovering/Resolving]
  - Dizziness [Unknown]
  - Product taste abnormal [Unknown]

NARRATIVE: CASE EVENT DATE: 2011
